FAERS Safety Report 7001383-9 (Version None)
Quarter: 2010Q3

REPORT INFORMATION
  Report Type: 
  Country: None (occurrence: None)
  Receive Date: 20100920
  Receipt Date: 20100615
  Transmission Date: 20110219
  Serious: Yes (Other)
  Sender: FDA-Public Use
  Company Number: US-ASTRAZENECA-2009UW20553

PATIENT
  Age: 21 Year
  Sex: Female
  Weight: 127 kg

DRUGS (1)
  1. SEROQUEL [Suspect]
     Indication: INSOMNIA
     Route: 048
     Dates: start: 19950101

REACTIONS (2)
  - CONVULSION [None]
  - TYPE 2 DIABETES MELLITUS [None]
